FAERS Safety Report 15272619 (Version 1)
Quarter: 2018Q3

REPORT INFORMATION
  Report Type: Spontaneous
  Country: US (occurrence: US)
  Receive Date: 20180813
  Receipt Date: 20180813
  Transmission Date: 20181010
  Serious: Yes (Hospitalization, Disabling)
  Sender: FDA-Public Use
  Company Number: US-ELI_LILLY_AND_COMPANY-US201808001833

PATIENT
  Sex: Female

DRUGS (2)
  1. HUMALOG MIX75/25 [Suspect]
     Active Substance: INSULIN LISPRO
     Indication: TYPE 1 DIABETES MELLITUS
     Dosage: 34 U, BID
     Route: 058
     Dates: start: 1998
  2. HUMALOG MIX75/25 [Suspect]
     Active Substance: INSULIN LISPRO
     Dosage: 34 U, BID
     Route: 058

REACTIONS (10)
  - Spinal column stenosis [Not Recovered/Not Resolved]
  - Urinary tract infection [Recovered/Resolved]
  - Wound infection staphylococcal [Recovered/Resolved]
  - Fall [Unknown]
  - Nephrolithiasis [Recovered/Resolved]
  - Nerve injury [Unknown]
  - Intervertebral disc protrusion [Not Recovered/Not Resolved]
  - Ankle fracture [Recovering/Resolving]
  - Diabetic foot [Recovering/Resolving]
  - Spinal fracture [Unknown]

NARRATIVE: CASE EVENT DATE: 2014
